FAERS Safety Report 21715017 (Version 1)
Quarter: 2022Q4

REPORT INFORMATION
  Report Type: Spontaneous
  Country: US (occurrence: None)
  Receive Date: 20221209
  Receipt Date: 20221209
  Transmission Date: 20230113
  Serious: Yes (Hospitalization, Disabling)
  Sender: FDA-Public Use
  Company Number: None

PATIENT
  Age: 42 Year
  Sex: Female

DRUGS (5)
  1. DUPIXENT [Suspect]
     Active Substance: DUPILUMAB
     Indication: Asthma
     Dosage: OTHER QUANTITY : 300MG/2ML;?OTHER FREQUENCY : EVERY 2 WEEK;?
     Route: 058
     Dates: start: 20221116
  2. PREDNISONE [Concomitant]
     Active Substance: PREDNISONE
  3. ALBUTEROL [Concomitant]
     Active Substance: ALBUTEROL
  4. DUONEB [Concomitant]
     Active Substance: ALBUTEROL SULFATE\IPRATROPIUM BROMIDE
  5. ONDANSETRON [Concomitant]
     Active Substance: ONDANSETRON

REACTIONS (1)
  - Pneumonia [None]

NARRATIVE: CASE EVENT DATE: 20221129
